FAERS Safety Report 19549873 (Version 1)
Quarter: 2021Q3

REPORT INFORMATION
  Report Type: Report from Study
  Country: US (occurrence: US)
  Receive Date: 20210714
  Receipt Date: 20210714
  Transmission Date: 20211014
  Serious: No
  Sender: FDA-Public Use
  Company Number: US-BIOVITRUM-2021US4879

PATIENT
  Sex: Female

DRUGS (2)
  1. KINERET [Suspect]
     Active Substance: ANAKINRA
     Indication: PRODUCT USED FOR UNKNOWN INDICATION
     Dosage: 1XDAILY AS NEEDED FOR FLARE UP
     Route: 058
     Dates: end: 20210524
  2. KINERET [Suspect]
     Active Substance: ANAKINRA
     Dosage: 1XDAILY AS NEEDED FOR FLARE UP
     Route: 058

REACTIONS (4)
  - Skin warm [Unknown]
  - Drug ineffective [Unknown]
  - Condition aggravated [Unknown]
  - Rash [Unknown]
